FAERS Safety Report 7237709 (Version 2)
Quarter: 2013Q4

REPORT INFORMATION
  Report Type: Spontaneous
  Country: US (occurrence: None)
  Receive Date: 20091217
  Receipt Date: 20131118
  Transmission Date: 20140711
  Serious: Yes (Death, Other)
  Sender: FDA-Public Use
  Company Number: 2009S1008734

PATIENT
  Age: 82 Year
  Sex: Male
  Weight: 82.56 kg

DRUGS (13)
  1. SODIUM PHOSPHATE, DIBASIC [Suspect]
     Indication: COLONOSCOPY
     Route: 048
     Dates: start: 20071112, end: 20071112
  2. MAGNESIUM CITRATE [Suspect]
     Indication: COLONOSCOPY
     Route: 048
     Dates: start: 20071112, end: 20071112
  3. FELODIPINE (FELODIPINE) [Concomitant]
  4. CELEBREX (CELECOXIB) [Concomitant]
  5. LOVASTATIN (LOVASTATIN) [Concomitant]
  6. XANAX (ALPRAZOLAM) [Concomitant]
  7. ATENOLOL (ATENOLOL) [Concomitant]
  8. ALLOPURINOL (ALLOPURINOL) [Concomitant]
  9. GLIPIZIDE ER (GLIPIZIDE) [Concomitant]
  10. LISINOPRIL (LISINOPRIL) [Concomitant]
  11. ASPIRIN (ACETYLSALICYLIC ACID) [Concomitant]
  12. ADVAIR INHALER (FLUTICASONE PROPIONATE, SALMETEROL XINAFOATE) [Concomitant]
  13. SUPRAX (CEFIXIME) [Concomitant]

REACTIONS (5)
  - Renal failure acute [None]
  - Respiratory arrest [None]
  - Rhabdomyolysis [None]
  - Pneumonia [None]
  - Dehydration [None]
